FAERS Safety Report 6442138-3 (Version None)
Quarter: 2009Q4

REPORT INFORMATION
  Report Type: 
  Country: None (occurrence: None)
  Receive Date: 20091116
  Receipt Date: 20091104
  Transmission Date: 20100525
  Serious: Yes (Hospitalization, Other)
  Sender: FDA-Public Use
  Company Number: PHHO2009US13373

PATIENT
  Sex: Female
  Weight: 160 kg

DRUGS (15)
  1. BLINDED NO TREATMENT RECEIVED NOMED [Suspect]
     Indication: PANCREATIC NEUROENDOCRINE TUMOUR
     Dosage: DOUBLE BLIND
     Route: 048
     Dates: start: 20080730
  2. BLINDED PLACEBO COMP-PLA+ [Suspect]
     Indication: PANCREATIC NEUROENDOCRINE TUMOUR
     Dosage: DOUBLE BLIND
     Route: 048
     Dates: start: 20080730
  3. BLINDED RAD 666 RAD+TAB+CMAS [Suspect]
     Indication: PANCREATIC NEUROENDOCRINE TUMOUR
     Dosage: DOUBLE BLIND
     Route: 048
     Dates: start: 20080730
  4. RAD001C [Suspect]
     Indication: PANCREATIC NEUROENDOCRINE TUMOUR
     Dosage: 5 MG, BID
     Route: 048
     Dates: end: 20091018
  5. FUROSEMIDE [Concomitant]
     Indication: HYPERTENSION
  6. AMLODIPINE BESYLATE [Concomitant]
     Indication: HYPERTENSION
  7. RANITIDINE [Concomitant]
     Indication: GASTROOESOPHAGEAL REFLUX DISEASE
  8. AMITRIPTYLINE HCL [Concomitant]
     Indication: DEPRESSION
  9. CLONIDINE [Concomitant]
     Indication: HYPERTENSION
  10. DIOVAN [Concomitant]
     Indication: HYPERTENSION
  11. VITAMIN D [Concomitant]
  12. NOVOLOG [Concomitant]
     Indication: DIABETES MELLITUS
  13. LANTUS [Concomitant]
  14. ARIXTRA [Concomitant]
     Indication: PORTAL VEIN THROMBOSIS
  15. VENTILATOR [Concomitant]

REACTIONS (21)
  - ABDOMINAL PAIN [None]
  - ACUTE MYOCARDIAL INFARCTION [None]
  - ANAEMIA [None]
  - BLOOD ALKALINE PHOSPHATASE INCREASED [None]
  - BLOOD CREATININE INCREASED [None]
  - BLOOD GLUCOSE INCREASED [None]
  - BLOOD UREA INCREASED [None]
  - CHILLS [None]
  - COUGH [None]
  - DYSPNOEA [None]
  - HYPERURICAEMIA [None]
  - HYPOKALAEMIA [None]
  - HYPOXIA [None]
  - IRON DEFICIENCY [None]
  - LUNG INFILTRATION [None]
  - PNEUMONIA [None]
  - PYREXIA [None]
  - RENAL FAILURE ACUTE [None]
  - RESPIRATORY DISTRESS [None]
  - RESPIRATORY FAILURE [None]
  - URINARY TRACT INFECTION [None]
